FAERS Safety Report 10387945 (Version 1)
Quarter: 2014Q1

REPORT INFORMATION
  Report Type: Spontaneous
  Country: US (occurrence: None)
  Receive Date: 20140306
  Receipt Date: 20140306
  Transmission Date: 20141002
  Serious: Yes (Hospitalization)
  Sender: FDA-Public Use
  Company Number: 163-21880-13110240

PATIENT
  Age: 53 Year
  Sex: Male

DRUGS (6)
  1. REVLIMID (LENALIDOMIDE) (CAPSULES) [Suspect]
     Indication: CHRONIC LYMPHOCYTIC LEUKAEMIA
     Dosage: 10 MG, 21 IN 21 D, PO
     Route: 048
     Dates: start: 20131008, end: 20131014
  2. SPIRIVA HANDIHALER (TIOTROPIUM BROMIDE) [Concomitant]
  3. IRON [Concomitant]
  4. COMBIVENT [Concomitant]
  5. BENDAMUSTINE [Concomitant]
  6. ALLOPURINOL [Concomitant]

REACTIONS (1)
  - Chronic lymphocytic leukaemia [None]
